FAERS Safety Report 6096492-5 (Version None)
Quarter: 2009Q1

REPORT INFORMATION
  Report Type: 
  Country: None (occurrence: None)
  Receive Date: 20090227
  Receipt Date: 20090216
  Transmission Date: 20090719
  Serious: Yes (Life-Threatening, Hospitalization, Other)
  Sender: FDA-Public Use
  Company Number: US-ELI_LILLY_AND_COMPANY-US200811003857

PATIENT
  Sex: Female

DRUGS (21)
  1. FORTEO [Suspect]
     Indication: OSTEOPOROSIS
     Dosage: 20 UG, DAILY (1/D)
     Dates: start: 20040401, end: 20050801
  2. FORTEO [Suspect]
     Dosage: UNK, UNK
     Dates: start: 20061201, end: 20081201
  3. COMBIVENT [Concomitant]
  4. NORVASC [Concomitant]
     Dosage: 5 MG, DAILY (1/D)
  5. ASPIRIN [Concomitant]
     Dosage: UNK, DAILY (1/D)
  6. CALTRATE + VITAMIN D [Concomitant]
     Dosage: 600 MG, 2/D
  7. ERGOCALCIFEROL [Concomitant]
     Dosage: 14000 IU, UNK
  8. PROTONIX [Concomitant]
  9. IRON [Concomitant]
     Dosage: 300 MG, UNK
  10. FOLIC ACID [Concomitant]
  11. VITAMIN B-12 [Concomitant]
     Dosage: 1000 UG, UNK
  12. LEVOTHYROXINE SODIUM [Concomitant]
     Dosage: 100 MG, DAILY (1/D)
  13. NITROGLYCERIN [Concomitant]
     Dosage: UNK, DAILY (1/D)
  14. POTASSIUM CHLORIDE [Concomitant]
     Dosage: 40 MG, DAILY (1/D)
  15. CARAFATE [Concomitant]
     Dosage: UNK, AS NEEDED
  16. CENTRUM SILVER [Concomitant]
  17. TORSEMIDE [Concomitant]
     Dosage: 20 MG, UNK
  18. FISH OIL [Concomitant]
  19. PLAVIX [Concomitant]
  20. HYDROMORPHONE HCL [Concomitant]
  21. METHOCARBAMOL [Concomitant]

REACTIONS (14)
  - ARRHYTHMIA [None]
  - BACK PAIN [None]
  - CARDIAC VALVE DISEASE [None]
  - CARDIOGENIC SHOCK [None]
  - CORONARY ARTERY OCCLUSION [None]
  - EXOSTOSIS [None]
  - GASTRIC ULCER [None]
  - HAEMORRHAGE [None]
  - HOSPITALISATION [None]
  - OSTEOPENIA [None]
  - OSTEOPOROSIS [None]
  - PAIN [None]
  - SPINAL LAMINECTOMY [None]
  - SYNOVIAL CYST [None]
